FAERS Safety Report 4451365-6 (Version None)
Quarter: 2004Q3

REPORT INFORMATION
  Report Type: 
  Country: None (occurrence: None)
  Receive Date: 20040913
  Receipt Date: 20040706
  Transmission Date: 20050211
  Serious: No
  Sender: FDA-Public Use
  Company Number: 2004-BP-05378BP (0)

PATIENT
  Age: 82 Year
  Sex: Male

DRUGS (7)
  1. SPIRIVA [Suspect]
     Indication: CHRONIC OBSTRUCTIVE AIRWAYS DISEASE
     Dosage: 18 MCG (18 MCG) IH
     Route: 055
  2. SEREVENT [Concomitant]
  3. TRENTAL [Concomitant]
  4. FOSAMAX [Concomitant]
  5. ACCOLATE [Concomitant]
  6. CIPRO [Concomitant]
  7. THERA-TEARS [Concomitant]

REACTIONS (1)
  - KERATOCONJUNCTIVITIS SICCA [None]
